FAERS Safety Report 4816809-6 (Version None)
Quarter: 2005Q4

REPORT INFORMATION
  Report Type: 
  Country: None (occurrence: None)
  Receive Date: 20051028
  Receipt Date: 20051021
  Transmission Date: 20060501
  Serious: Yes (Other)
  Sender: FDA-Public Use
  Company Number: 200513387BCC

PATIENT
  Age: 21 Year
  Sex: Male

DRUGS (3)
  1. ALEVE [Suspect]
     Indication: TOOTH EXTRACTION
     Dosage: 660  MG, TID, ORAL
     Route: 048
     Dates: start: 20050801, end: 20050822
  2. EXTRA STRENGTH TYLENOL [Suspect]
     Indication: TOOTH EXTRACTION
     Dosage: 1000 MG, TID, ORAL
     Route: 048
     Dates: start: 20050801, end: 20050822
  3. VICODIN [Concomitant]

REACTIONS (7)
  - ABSCESS ORAL [None]
  - CHEST PAIN [None]
  - DYSPNOEA [None]
  - FACE INJURY [None]
  - PAIN IN JAW [None]
  - SWELLING FACE [None]
  - VICTIM OF CRIME [None]
